FAERS Safety Report 23533079 (Version 1)
Quarter: 2024Q1

REPORT INFORMATION
  Report Type: Spontaneous
  Country: US (occurrence: None)
  Receive Date: 20240216
  Receipt Date: 20240216
  Transmission Date: 20240410
  Serious: Yes (Death)
  Sender: FDA-Public Use
  Company Number: None

PATIENT
  Age: 31 Year
  Sex: Male
  Weight: 47.25 kg

DRUGS (7)
  1. TACROLIMUS [Suspect]
     Active Substance: TACROLIMUS
     Indication: Prophylaxis against transplant rejection
     Dosage: FREQUENCY : TWICE A DAY;?
     Route: 048
     Dates: start: 20231115, end: 20231221
  2. MIRTAZAPINE [Concomitant]
     Active Substance: MIRTAZAPINE
     Dates: start: 20231115, end: 20231221
  3. Mag-oxide 400mg [Concomitant]
     Dates: start: 20231115, end: 20231221
  4. Prochlorperazine 5mg [Concomitant]
     Dates: start: 20231115, end: 20231221
  5. VORICONAZOLE [Concomitant]
     Active Substance: VORICONAZOLE
     Dates: start: 20231115, end: 20231221
  6. SERTRALINE [Concomitant]
     Active Substance: SERTRALINE HYDROCHLORIDE
     Dates: start: 20231115, end: 20231221
  7. FAMCICLOVIR [Concomitant]
     Active Substance: FAMCICLOVIR
     Dates: start: 20231115, end: 20231221

REACTIONS (1)
  - Multiple organ dysfunction syndrome [None]

NARRATIVE: CASE EVENT DATE: 20231221
